FAERS Safety Report 15820451 (Version 3)
Quarter: 2019Q2

REPORT INFORMATION
  Report Type: Report from Study
  Country: CA (occurrence: CA)
  Receive Date: 20190114
  Receipt Date: 20190510
  Transmission Date: 20190711
  Serious: Yes (Other)
  Sender: FDA-Public Use
  Company Number: CA-JNJFOC-20190104274

PATIENT
  Age: 73 Year
  Sex: Female

DRUGS (1)
  1. STELARA [Suspect]
     Active Substance: USTEKINUMAB
     Indication: PSORIASIS
     Route: 058
     Dates: start: 20170822

REACTIONS (9)
  - Psoriasis [Not Recovered/Not Resolved]
  - Chest injury [Unknown]
  - Neoplasm [Recovering/Resolving]
  - Fall [Unknown]
  - Headache [Not Recovered/Not Resolved]
  - Arthritis [Not Recovered/Not Resolved]
  - Drug ineffective [Unknown]
  - Osteoporosis [Unknown]
  - Joint injury [Unknown]

NARRATIVE: CASE EVENT DATE: 20181217
